FAERS Safety Report 6169932-0 (Version None)
Quarter: 2009Q2

REPORT INFORMATION
  Report Type: 
  Country: None (occurrence: None)
  Receive Date: 20090428
  Receipt Date: 20090420
  Transmission Date: 20091009
  Serious: Yes (Hospitalization)
  Sender: FDA-Public Use
  Company Number: AU-ELI_LILLY_AND_COMPANY-AU200903006472

PATIENT
  Sex: Male
  Weight: 132 kg

DRUGS (8)
  1. BYETTA [Suspect]
     Indication: TYPE 2 DIABETES MELLITUS
     Dosage: 5 UG, 2/D
     Route: 065
     Dates: start: 20081226, end: 20090223
  2. BYETTA [Suspect]
     Dosage: 10 UG, 2/D
     Route: 065
     Dates: start: 20090223, end: 20090227
  3. RENIPRIL [Concomitant]
     Dosage: UNK, UNKNOWN
     Route: 065
  4. GLICLAZIDE [Concomitant]
     Indication: TYPE 2 DIABETES MELLITUS
     Dosage: 160 MG, 2/D
     Route: 065
     Dates: start: 20050101
  5. METFORMIN HCL [Concomitant]
     Indication: TYPE 2 DIABETES MELLITUS
     Dosage: 1.7 G, 2/D
     Route: 065
     Dates: start: 20050101
  6. IRBESARTAN [Concomitant]
     Dosage: 300 MG, DAILY (1/D)
     Route: 065
     Dates: start: 20040101
  7. AMLODIPINE [Concomitant]
     Dosage: 10 MG, DAILY (1/D)
     Route: 065
     Dates: start: 20040101
  8. EFFEXOR [Concomitant]
     Dosage: UNK, UNKNOWN
     Route: 065
     Dates: start: 20080101

REACTIONS (5)
  - BACK PAIN [None]
  - DYSURIA [None]
  - PANCREATITIS [None]
  - POLYDIPSIA [None]
  - RENAL PAIN [None]
